FAERS Safety Report 16503031 (Version 1)
Quarter: 2019Q3

REPORT INFORMATION
  Report Type: Spontaneous
  Country: US (occurrence: US)
  Receive Date: 20190701
  Receipt Date: 20190701
  Transmission Date: 20191004
  Serious: No
  Sender: FDA-Public Use
  Company Number: US-GALDERMA-US19011766

PATIENT
  Age: 37 Year
  Sex: Female

DRUGS (12)
  1. PROACTIV MD DEEP CLEANSING FACE WASH [Concomitant]
     Active Substance: COSMETICS
     Indication: RASH PAPULAR
  2. PROACTIV GREEN TEA MOISTURIZER [Concomitant]
     Active Substance: COSMETICS
     Indication: RASH PAPULAR
  3. PROACTIV MD ADAPALENE ACNE TREATMENT [Suspect]
     Active Substance: ADAPALENE
     Indication: ACNE
     Dosage: 0.1%
     Route: 061
     Dates: start: 20190118, end: 201902
  4. PROACTIV MD DEEP CLEANSING FACE WASH [Concomitant]
     Active Substance: COSMETICS
     Indication: ACNE
     Route: 061
     Dates: start: 20190118, end: 201902
  5. PROACTIV MD BALANCING TONER [Concomitant]
     Active Substance: COSMETICS
     Indication: RASH PAPULAR
  6. PROACTIV EYE BRIGHTENING SERUM [Concomitant]
     Active Substance: COSMETICS
     Indication: RASH PAPULAR
  7. PROACTIV MD DAILY OIL CONTROL SPF 30 [Suspect]
     Active Substance: AVOBENZONE\OCTISALATE\OCTOCRYLENE
     Indication: RASH PAPULAR
  8. PROACTIV GREEN TEA MOISTURIZER [Concomitant]
     Active Substance: COSMETICS
     Indication: ACNE
     Route: 061
     Dates: start: 20190118, end: 201902
  9. PROACTIV MD ADAPALENE ACNE TREATMENT [Suspect]
     Active Substance: ADAPALENE
     Indication: RASH PAPULAR
  10. PROACTIV MD DAILY OIL CONTROL SPF 30 [Suspect]
     Active Substance: AVOBENZONE\OCTISALATE\OCTOCRYLENE
     Indication: ACNE
     Route: 061
     Dates: start: 20190118, end: 201902
  11. PROACTIV EYE BRIGHTENING SERUM [Concomitant]
     Active Substance: COSMETICS
     Indication: ACNE
     Route: 061
     Dates: start: 20190118, end: 201902
  12. PROACTIV MD BALANCING TONER [Concomitant]
     Active Substance: COSMETICS
     Indication: ACNE
     Route: 061
     Dates: start: 20190118, end: 201902

REACTIONS (6)
  - Dry skin [Recovered/Resolved]
  - Skin burning sensation [Recovered/Resolved]
  - Product use in unapproved indication [Recovered/Resolved]
  - Skin exfoliation [Recovered/Resolved]
  - Inappropriate schedule of product administration [Recovered/Resolved]
  - Underdose [Recovered/Resolved]

NARRATIVE: CASE EVENT DATE: 201901
